FAERS Safety Report 16185119 (Version 1)
Quarter: 2019Q2

REPORT INFORMATION
  Report Type: Spontaneous
  Country: US (occurrence: US)
  Receive Date: 20190411
  Receipt Date: 20190411
  Transmission Date: 20190711
  Serious: No
  Sender: FDA-Public Use
  Company Number: US-ABBVIE-19P-163-2728858-00

PATIENT
  Sex: Female

DRUGS (2)
  1. TASIDOTIN. [Concomitant]
     Active Substance: TASIDOTIN
     Indication: PRODUCT USED FOR UNKNOWN INDICATION
  2. VENETOCLAX. [Suspect]
     Active Substance: VENETOCLAX
     Indication: ACUTE MYELOID LEUKAEMIA
     Route: 065
     Dates: start: 20181128, end: 201901

REACTIONS (4)
  - Off label use [Unknown]
  - Neuralgia [Unknown]
  - Myalgia [Unknown]
  - Arthralgia [Unknown]
